FAERS Safety Report 6283928-X (Version None)
Quarter: 2009Q3

REPORT INFORMATION
  Report Type: 
  Country: None (occurrence: None)
  Receive Date: 20090722
  Receipt Date: 20090722
  Transmission Date: 20100115
  Serious: Yes (Life-Threatening, Hospitalization, Disabling)
  Sender: FDA-Public Use
  Company Number: None

PATIENT
  Sex: Female
  Weight: 64.4108 kg

DRUGS (2)
  1. CYMBALTA [Suspect]
     Indication: DEPRESSION
     Dosage: 60 MG ONCE DAILY PO
     Route: 048
     Dates: start: 20090526, end: 20090601
  2. CYMBALTA [Suspect]
     Indication: FIBROMYALGIA
     Dosage: 30MG ONCE DAILY PO
     Route: 048
     Dates: start: 20090602, end: 20090614

REACTIONS (4)
  - COLITIS ISCHAEMIC [None]
  - LARGE INTESTINAL ULCER [None]
  - PYREXIA [None]
  - RECTAL HAEMORRHAGE [None]
